FAERS Safety Report 25074343 (Version 1)
Quarter: 2025Q1

REPORT INFORMATION
  Report Type: Spontaneous
  Country: US (occurrence: US)
  Receive Date: 20250313
  Receipt Date: 20250313
  Transmission Date: 20250408
  Serious: Yes (Hospitalization, Other)
  Sender: PFIZER
  Company Number: US-PFIZER INC-202500054894

PATIENT
  Age: 67 Year
  Sex: Female
  Weight: 58.97 kg

DRUGS (2)
  1. XELJANZ XR [Suspect]
     Active Substance: TOFACITINIB CITRATE
     Indication: Rheumatoid arthritis
     Dosage: 11 MG, 1X/DAY
     Route: 048
     Dates: start: 2023, end: 202412
  2. METHOTREXATE [Concomitant]
     Active Substance: METHOTREXATE
     Dosage: 25 MILLIGRAMS SUBCUTANEOUSLY ONCE A WEEK
     Route: 058

REACTIONS (4)
  - Abdominal pain [Recovered/Resolved]
  - Perforated ulcer [Recovered/Resolved]
  - Intra-abdominal fluid collection [Recovered/Resolved]
  - Hypoacusis [Recovered/Resolved]
